FAERS Safety Report 5798799-5 (Version None)
Quarter: 2008Q3

REPORT INFORMATION
  Report Type: 
  Country: None (occurrence: None)
  Receive Date: 20080702
  Receipt Date: 20080624
  Transmission Date: 20090109
  Serious: Yes (Hospitalization)
  Sender: FDA-Public Use
  Company Number: FR-BRISTOL-MYERS SQUIBB COMPANY-14246979

PATIENT
  Age: 81 Year
  Sex: Male

DRUGS (19)
  1. ENDOXAN [Suspect]
     Indication: NON-HODGKIN'S LYMPHOMA
     Dosage: THERAPY STARTED ON 29APR08. THERAPY DURATION 24 DAYS.
     Route: 042
     Dates: start: 20080522, end: 20080522
  2. VINCRISTINE SULFATE [Suspect]
     Indication: NON-HODGKIN'S LYMPHOMA
     Dosage: THERAPY STARTED ON 29APR08. THERAPY DURATION 24 DAYS.
     Route: 042
     Dates: start: 20080522, end: 20080522
  3. MABTHERA [Suspect]
     Indication: NON-HODGKIN'S LYMPHOMA
     Dosage: THERAPY STARTED ON 29APR08. THERAPY DURATION 24 DAYS.
     Route: 042
     Dates: start: 20080522, end: 20080522
  4. INSULATARD [Concomitant]
     Dates: start: 20080101
  5. PERINDOPRIL ERBUMINE [Concomitant]
     Dates: start: 20080101
  6. PLAVIX [Concomitant]
     Dates: start: 20080101
  7. ASPIRIN [Concomitant]
     Dates: start: 20080101
  8. OMEPRAZOLE [Concomitant]
     Dates: start: 20080101
  9. DETENSIEL [Concomitant]
     Dates: start: 20080101
  10. ZOLPIDEM TARTRATE [Concomitant]
     Dates: start: 20080101
  11. TAHOR [Concomitant]
     Dates: start: 20080101
  12. LACTULOSE [Concomitant]
  13. LASIX [Concomitant]
  14. ACETAMINOPHEN [Concomitant]
  15. DIMETANE [Concomitant]
  16. INSULIN [Concomitant]
  17. CARTROL [Concomitant]
  18. CORTANCYL [Concomitant]
  19. ACTRAPID [Concomitant]

REACTIONS (3)
  - ACUTE CORONARY SYNDROME [None]
  - ANAEMIA [None]
  - LEUKOPENIA [None]
